FAERS Safety Report 18919286 (Version 2)
Quarter: 2021Q1

REPORT INFORMATION
  Report Type: Spontaneous
  Country: US (occurrence: US)
  Receive Date: 20210220
  Receipt Date: 20210225
  Transmission Date: 20210420
  Serious: No
  Sender: FDA-Public Use
  Company Number: US-TORRENT-00010732

PATIENT
  Sex: Female
  Weight: 68 kg

DRUGS (3)
  1. CHLORTHALIDONE. [Concomitant]
     Active Substance: CHLORTHALIDONE
     Indication: HYPERTENSION
     Dosage: ONCE A DAY, SINCE MORE THAN 10 YEARS
  2. FELODIPINE EXTENDED?RELEASE TABLETS USP [Suspect]
     Active Substance: FELODIPINE
     Indication: HYPERTENSION
     Dosage: FOR MORE THAN 10 YEARS, ONCE A DAY
     Dates: start: 20210206
  3. ASPIRIN. [Concomitant]
     Active Substance: ASPIRIN
     Indication: TRANSIENT ISCHAEMIC ATTACK
     Dosage: LOW DOSE

REACTIONS (2)
  - Product odour abnormal [Unknown]
  - Product taste abnormal [Unknown]
